FAERS Safety Report 19010321 (Version 2)
Quarter: 2021Q1

REPORT INFORMATION
  Report Type: Spontaneous
  Country: US (occurrence: US)
  Receive Date: 20210316
  Receipt Date: 20210331
  Transmission Date: 20210420
  Serious: Yes (Other)
  Sender: FDA-Public Use
  Company Number: US-AUROBINDO-AUR-APL-2021-010447

PATIENT
  Age: 6 Year
  Sex: Female

DRUGS (7)
  1. CYCLOPHOSPHAMIDE. [Concomitant]
     Active Substance: CYCLOPHOSPHAMIDE
     Indication: NEPHROBLASTOMA
     Dosage: UNK
     Route: 065
  2. DACTINOMYCIN [Suspect]
     Active Substance: DACTINOMYCIN
     Indication: METASTASIS
  3. DACTINOMYCIN [Suspect]
     Active Substance: DACTINOMYCIN
     Indication: NEPHROBLASTOMA
     Dosage: UNK
     Route: 065
  4. VINCRISTINE [Suspect]
     Active Substance: VINCRISTINE
     Indication: METASTASIS
  5. DOXORUBICIN [Suspect]
     Active Substance: DOXORUBICIN
     Indication: NEPHROBLASTOMA
     Dosage: UNK
     Route: 065
  6. ETOPOSIDE. [Concomitant]
     Active Substance: ETOPOSIDE
     Indication: METASTASIS
     Dosage: UNK
     Route: 065
  7. VINCRISTINE [Suspect]
     Active Substance: VINCRISTINE
     Indication: NEPHROBLASTOMA
     Dosage: UNK
     Route: 065

REACTIONS (9)
  - Ascites [Unknown]
  - Atypical haemolytic uraemic syndrome [Recovering/Resolving]
  - Pleural effusion [Unknown]
  - Hypertensive urgency [Unknown]
  - Renal impairment [Recovering/Resolving]
  - Haematuria [Unknown]
  - Thrombotic microangiopathy [Recovering/Resolving]
  - Hypervolaemia [Unknown]
  - Pericardial effusion [Unknown]
